FAERS Safety Report 9251476 (Version 4)
Quarter: 2014Q2

REPORT INFORMATION
  Report Type: Spontaneous
  Country: US (occurrence: US)
  Receive Date: 20130424
  Receipt Date: 20140401
  Transmission Date: 20141212
  Serious: No
  Sender: FDA-Public Use
  Company Number: US-ASTRAZENECA-2013SE27580

PATIENT
  Age: 60 Year
  Sex: Female
  Weight: 64.9 kg

DRUGS (22)
  1. NEXIUM [Suspect]
     Indication: ABDOMINAL DISCOMFORT
     Dosage: 20MG AND 40 MG ONCE DAILY
     Route: 048
     Dates: end: 2010
  2. NEXIUM [Suspect]
     Indication: GASTROOESOPHAGEAL REFLUX DISEASE
     Dosage: 20MG AND 40 MG ONCE DAILY
     Route: 048
     Dates: end: 2010
  3. NEXIUM [Suspect]
     Indication: ABDOMINAL DISCOMFORT
     Dosage: CARTONS OF SEVEN PILLS EACH 20 - 40 MG ONCE DAILY
     Route: 048
     Dates: end: 2012
  4. NEXIUM [Suspect]
     Indication: GASTROOESOPHAGEAL REFLUX DISEASE
     Dosage: CARTONS OF SEVEN PILLS EACH 20 - 40 MG ONCE DAILY
     Route: 048
     Dates: end: 2012
  5. NEXIUM [Suspect]
     Indication: ABDOMINAL DISCOMFORT
     Route: 048
     Dates: start: 20060524
  6. NEXIUM [Suspect]
     Indication: GASTROOESOPHAGEAL REFLUX DISEASE
     Route: 048
     Dates: start: 20060524
  7. NEXIUM [Suspect]
     Indication: ABDOMINAL DISCOMFORT
     Route: 048
     Dates: start: 20090730
  8. NEXIUM [Suspect]
     Indication: GASTROOESOPHAGEAL REFLUX DISEASE
     Route: 048
     Dates: start: 20090730
  9. OMEPRAZOLE [Suspect]
     Route: 048
     Dates: start: 2010
  10. RANITIDINE [Concomitant]
     Indication: GASTRIC DISORDER
     Dosage: DAILY
     Dates: start: 2011
  11. RANITIDINE [Concomitant]
     Indication: GASTROOESOPHAGEAL REFLUX DISEASE
     Dosage: DAILY
     Dates: start: 2011
  12. ADVAIR [Concomitant]
     Dosage: 50-250 MCG DOSE AEFB.1 PUFF BID AND RINSE MOUTH AFTER USE
  13. SINGULAIR [Concomitant]
     Dosage: 50-250 MCG DOSE AEFB.1 PUFF BID AND RINSE MOUTH AFTER USE
  14. DIOVAN HCT [Concomitant]
     Dosage: 50-250 MCG DOSE AEFB.1 PUFF BID AND RINSE MOUTH AFTER USE
  15. AMLODIPINE [Concomitant]
     Dates: start: 20090818
  16. SIMVASTATIN [Concomitant]
     Dates: start: 20091023
  17. IBUPROFEN [Concomitant]
     Dates: start: 20100126
  18. TEKTURNA [Concomitant]
     Dates: start: 20101129
  19. LORATADINE [Concomitant]
  20. NOVOLIN [Concomitant]
  21. PREVACID [Concomitant]
  22. ALBUTEROL [Concomitant]

REACTIONS (11)
  - Osteoporosis [Unknown]
  - Bone disorder [Unknown]
  - Multiple fractures [Unknown]
  - Foot fracture [Unknown]
  - Pain in extremity [Unknown]
  - Cataract [Unknown]
  - Lung disorder [Unknown]
  - Limb discomfort [Unknown]
  - Laryngeal polyp [Unknown]
  - Oesophageal disorder [Unknown]
  - Dysphagia [Unknown]
